FAERS Safety Report 6244053-7 (Version None)
Quarter: 2009Q2

REPORT INFORMATION
  Report Type: 
  Country: None (occurrence: None)
  Receive Date: 20090619
  Receipt Date: 20090520
  Transmission Date: 20091009
  Serious: No
  Sender: FDA-Public Use
  Company Number: SPV1-2009-01037

PATIENT
  Age: 2 Year
  Sex: Male
  Weight: 15 kg

DRUGS (3)
  1. VYVANSE [Suspect]
     Dosage: 20 MG, 1X/DAY:QD, ORAL ; 60 MG, ONE DOSE (TOOK THREE 20MG PILLS THIS MORNING), ORAL
     Route: 048
     Dates: start: 20090520, end: 20090520
  2. VYVANSE [Suspect]
     Dosage: 20 MG, 1X/DAY:QD, ORAL ; 60 MG, ONE DOSE (TOOK THREE 20MG PILLS THIS MORNING), ORAL
     Route: 048
     Dates: start: 20090316
  3. ALBUTEROL /00139501/ (SALBUTAMOL) [Concomitant]

REACTIONS (3)
  - ACCIDENTAL EXPOSURE [None]
  - HALLUCINATION, VISUAL [None]
  - OFF LABEL USE [None]
